FAERS Safety Report 19159733 (Version 1)
Quarter: 2021Q2

REPORT INFORMATION
  Report Type: Spontaneous
  Country: US (occurrence: US)
  Receive Date: 20210420
  Receipt Date: 20210420
  Transmission Date: 20210717
  Serious: No
  Sender: FDA-Public Use
  Company Number: US-TEVA-2021-US-1899336

PATIENT
  Age: 77 Year
  Sex: Female

DRUGS (2)
  1. DILTIAZEM HYDROCHLORIDE TEVA [Suspect]
     Active Substance: DILTIAZEM HYDROCHLORIDE
     Dosage: FOR 20 YEARS
     Route: 065
  2. DILTIAZEM HYDROCHLORIDE TEVA [Suspect]
     Active Substance: DILTIAZEM HYDROCHLORIDE
     Route: 065

REACTIONS (2)
  - Cardiac disorder [Not Recovered/Not Resolved]
  - Bedridden [Not Recovered/Not Resolved]
